FAERS Safety Report 6771429-1 (Version None)
Quarter: 2010Q2

REPORT INFORMATION
  Report Type: 
  Country: None (occurrence: None)
  Receive Date: 20100614
  Receipt Date: 20100528
  Transmission Date: 20101027
  Serious: Yes (Other)
  Sender: FDA-Public Use
  Company Number: AUR-APL-2010-01418

PATIENT
  Age: 45 Year
  Sex: Male

DRUGS (3)
  1. CITALOPRAM [Suspect]
     Dosage: 20MG, DAILY, ORAL
     Route: 048
     Dates: start: 20100301
  2. ALLOPURINOL [Concomitant]
  3. FLIXONASE [Concomitant]

REACTIONS (2)
  - DISCOMFORT [None]
  - PAIN [None]
